FAERS Safety Report 5774352-4 (Version None)
Quarter: 2008Q2

REPORT INFORMATION
  Report Type: 
  Country: None (occurrence: None)
  Receive Date: 20080616
  Receipt Date: 20080609
  Transmission Date: 20081010
  Serious: Yes (Hospitalization, Other)
  Sender: FDA-Public Use
  Company Number: PHEH2005US09569

PATIENT
  Sex: Female
  Weight: 86.167 kg

DRUGS (6)
  1. ESTRADERM [Suspect]
     Indication: MENOPAUSE
     Dosage: 0.05 MG/10 CM
     Route: 062
     Dates: start: 19850101, end: 19970101
  2. PREMARIN [Suspect]
     Dates: start: 19880101, end: 19960101
  3. PROVERA [Suspect]
     Indication: MENOPAUSE
     Dosage: 2.5 MG, UNK
     Route: 048
     Dates: start: 19850101, end: 19970101
  4. ESTRADIOL [Suspect]
     Indication: MENOPAUSE
     Dates: start: 19850101, end: 19970101
  5. MEDROXYPROGESTERONE [Suspect]
     Indication: MENOPAUSE
     Dosage: 2.5 MG, UNK
     Route: 048
     Dates: start: 19850101, end: 19970101
  6. EFFEXOR [Concomitant]
     Indication: HOT FLUSH
     Dates: start: 19970101, end: 19990101

REACTIONS (47)
  - ABDOMINAL PAIN UPPER [None]
  - ANXIETY [None]
  - ASTHENIA [None]
  - BACK PAIN [None]
  - BIOPSY ENDOMETRIUM ABNORMAL [None]
  - BONE MARROW DISORDER [None]
  - BREAST CANCER [None]
  - BREAST CYST EXCISION [None]
  - BREAST MASS [None]
  - CERVICITIS [None]
  - CHILLS [None]
  - CHOLECYSTECTOMY [None]
  - CHOLECYSTITIS CHRONIC [None]
  - CHOLESTEROSIS [None]
  - CYSTITIS HAEMORRHAGIC [None]
  - CYSTOCELE [None]
  - CYSTOCELE REPAIR [None]
  - CYSTOPEXY [None]
  - CYSTOSCOPY [None]
  - DIVERTICULITIS [None]
  - FIBROCYSTIC BREAST DISEASE [None]
  - FLATULENCE [None]
  - GASTROINTESTINAL DISORDER [None]
  - HAEMATURIA [None]
  - HEPATIC CYST [None]
  - HYPERTENSION [None]
  - HYSTERECTOMY [None]
  - INJURY [None]
  - INTERVERTEBRAL DISC DEGENERATION [None]
  - INTERVERTEBRAL DISC DISORDER [None]
  - INTESTINAL GASTRIC METAPLASIA [None]
  - MALIGNANT BREAST LUMP REMOVAL [None]
  - NAUSEA [None]
  - OSTEOSCLEROSIS [None]
  - PAIN [None]
  - PHYSICAL DISABILITY [None]
  - RADIATION INJURY [None]
  - RADIOTHERAPY [None]
  - SALPINGO-OOPHORECTOMY BILATERAL [None]
  - SCAR [None]
  - SPINAL OSTEOARTHRITIS [None]
  - SWELLING [None]
  - ULTRASOUND BILIARY TRACT [None]
  - UMBILICAL HERNIA REPAIR [None]
  - URETHRAL DILATATION [None]
  - URETHRAL STENOSIS [None]
  - UTERINE PROLAPSE [None]
